FAERS Safety Report 8975719 (Version 1)
Quarter: 2012Q4

REPORT INFORMATION
  Report Type: 
  Country: US (occurrence: US)
  Receive Date: 20121219
  Receipt Date: 20121219
  Transmission Date: 20130627
  Serious: No
  Sender: FDA-Public Use
  Company Number: US-PFIZER INC-2012317121

PATIENT
  Age: 51 Year
  Sex: Female
  Weight: 69.39 kg

DRUGS (2)
  1. INSPRA [Suspect]
     Indication: MALIGNANT HYPERTENSION
     Dosage: 25 mg, daily
     Dates: start: 2012
  2. SPIRONOLACTONE [Suspect]
     Indication: MALIGNANT HYPERTENSION
     Dosage: UNK

REACTIONS (2)
  - Bladder irritation [Not Recovered/Not Resolved]
  - Bladder pain [Not Recovered/Not Resolved]
